FAERS Safety Report 18820029 (Version 2)
Quarter: 2021Q1

REPORT INFORMATION
  Report Type: Spontaneous
  Country: JP (occurrence: JP)
  Receive Date: 20210202
  Receipt Date: 20210304
  Transmission Date: 20210419
  Serious: No
  Sender: FDA-Public Use
  Company Number: NVSJ2021JP001746

PATIENT
  Age: 84 Year
  Sex: Male
  Weight: 51.9 kg

DRUGS (1)
  1. GLIVEC [Suspect]
     Active Substance: IMATINIB MESYLATE
     Indication: LEUKAEMIA
     Dosage: UNK
     Route: 048

REACTIONS (3)
  - Haematoma [Unknown]
  - Fall [Unknown]
  - Scintillating scotoma [Unknown]
